FAERS Safety Report 4610868-1 (Version None)
Quarter: 2005Q2

REPORT INFORMATION
  Report Type: 
  Country: None (occurrence: None)
  Receive Date: 20050222
  Receipt Date: 20040810
  Transmission Date: 20051028
  Serious: Yes (Hospitalization)
  Sender: FDA-Public Use
  Company Number: 2004220426US

PATIENT
  Age: 75 Year
  Sex: Male

DRUGS (12)
  1. EMCYT [Suspect]
     Indication: PROSTATE CANCER
     Dosage: 140 MG, BID, ORAL
     Route: 048
     Dates: start: 20040323, end: 20040404
  2. THALIDOMIDE (THALIDOMIDE) [Suspect]
     Indication: PROSTATE CANCER
     Dosage: 50 MG, HS, ORAL
     Route: 048
     Dates: start: 20031029, end: 20040420
  3. TAXOTERE [Suspect]
     Indication: PROSTATE CANCER
     Dosage: 40 MG, IV
     Route: 042
     Dates: start: 20040323, end: 20040330
  4. XELODA [Suspect]
     Indication: PROSTATE CANCER
     Dosage: 1500 MG, BID
     Dates: start: 20040319, end: 20040402
  5. CYTADREN [Concomitant]
  6. HYDROCORTISONE [Concomitant]
  7. PROSCAR [Concomitant]
  8. CALCITROL (ERGOCALCIFEROL, RETINOL) [Concomitant]
  9. LYCOPENE (LYCOPENE) [Concomitant]
  10. LUPRON [Concomitant]
  11. EPOGEN [Concomitant]
  12. ZOMETA [Concomitant]

REACTIONS (2)
  - DIARRHOEA [None]
  - NAUSEA [None]
